FAERS Safety Report 4421394-7 (Version None)
Quarter: 2004Q3

REPORT INFORMATION
  Report Type: 
  Country: None (occurrence: None)
  Receive Date: 20040719
  Receipt Date: 20040601
  Transmission Date: 20050211
  Serious: No
  Sender: FDA-Public Use
  Company Number: 2004219984US

PATIENT
  Age: 80 Year
  Sex: Female

DRUGS (1)
  1. INSPRA [Suspect]
     Dosage: 25 MG

REACTIONS (1)
  - ANAEMIA [None]
